FAERS Safety Report 11957809 (Version 2)
Quarter: 2016Q1

REPORT INFORMATION
  Report Type: Report from Study
  Country: US (occurrence: US)
  Receive Date: 20160126
  Receipt Date: 20160202
  Transmission Date: 20160526
  Serious: No
  Sender: FDA-Public Use
  Company Number: US-ABBVIE-15K-163-1347354-00

PATIENT
  Age: 54 Year
  Sex: Female

DRUGS (2)
  1. HUMIRA [Suspect]
     Active Substance: ADALIMUMAB
     Indication: PSORIATIC ARTHROPATHY
     Route: 065
  2. HUMIRA [Suspect]
     Active Substance: ADALIMUMAB
     Indication: PSORIASIS
     Route: 065
     Dates: start: 20150113

REACTIONS (8)
  - Drug ineffective [Recovered/Resolved]
  - Psoriasis [Unknown]
  - Wrong technique in product usage process [Unknown]
  - Overdose [Unknown]
  - Drug effect decreased [Unknown]
  - Product colour issue [Unknown]
  - Incorrect product storage [Unknown]
  - Injury associated with device [Unknown]

NARRATIVE: CASE EVENT DATE: 2015
